FAERS Safety Report 9339565 (Version 6)
Quarter: 2013Q4

REPORT INFORMATION
  Report Type: Spontaneous
  Country: US (occurrence: US)
  Receive Date: 20130610
  Receipt Date: 20131003
  Transmission Date: 20140711
  Serious: Yes (Hospitalization)
  Sender: FDA-Public Use
  Company Number: US-BIOGENIDEC-2013BI051074

PATIENT
  Age: 44 Year
  Sex: Female

DRUGS (4)
  1. TECFIDERA [Suspect]
     Indication: MULTIPLE SCLEROSIS
     Route: 048
     Dates: start: 20130512
  2. TECFIDERA [Suspect]
     Indication: MULTIPLE SCLEROSIS
     Route: 048
  3. TECFIDERA [Suspect]
     Indication: MULTIPLE SCLEROSIS
     Route: 048
     Dates: start: 20130618, end: 20130816
  4. CYMBALTA [Concomitant]

REACTIONS (9)
  - Dehydration [Unknown]
  - Pneumonia [Recovered/Resolved]
  - Gastroenteritis viral [Recovered/Resolved]
  - Abdominal pain upper [Not Recovered/Not Resolved]
  - Pain [Not Recovered/Not Resolved]
  - Hypophagia [Not Recovered/Not Resolved]
  - Nausea [Recovered/Resolved]
  - Abdominal distension [Recovered/Resolved]
  - Lymphocyte count decreased [Not Recovered/Not Resolved]
